FAERS Safety Report 9230823 (Version 1)
Quarter: 2013Q2

REPORT INFORMATION
  Report Type: Spontaneous
  Country: JP (occurrence: JP)
  Receive Date: 20130415
  Receipt Date: 20130415
  Transmission Date: 20140414
  Serious: Yes (Hospitalization)
  Sender: FDA-Public Use
  Company Number: JP-ROCHE-1212473

PATIENT
  Age: 77 Year
  Sex: Male
  Weight: 68 kg

DRUGS (13)
  1. ROCEPHIN [Suspect]
     Indication: ENDOCARDITIS BACTERIAL
     Route: 042
     Dates: start: 20130208, end: 20130309
  2. HEPARIN SODIUM [Concomitant]
     Dosage: DOSAGE IS UNCERTAIN.
     Route: 065
  3. WARFARIN [Concomitant]
     Dosage: DOSAGE IS UNCERTAIN.
     Route: 065
     Dates: end: 20130307
  4. VANCOMYCIN [Concomitant]
     Dosage: DOSAGE IS UNCERTAIN.
     Route: 042
     Dates: end: 20130305
  5. GENTAMICIN SULFATE [Concomitant]
     Dosage: DOSAGE IS UNCERTAIN.
     Route: 065
  6. FERROMIA [Concomitant]
     Dosage: DOSAGE IS UNCERTAIN.
     Route: 065
  7. METFORMIN HYDROCHLORIDE [Concomitant]
     Dosage: DOSAGE IS UNCERTAIN.
     Route: 065
  8. ALOGLIPTIN BENZOATE [Concomitant]
     Dosage: DOSAGE IS UNCERTAIN.
     Route: 065
  9. BASEN [Concomitant]
     Dosage: DOSAGE IS UNCERTAIN.
     Route: 065
  10. BAYASPIRIN [Concomitant]
     Dosage: DOSAGE IS UNCERTAIN.
     Route: 065
  11. NEXIUM [Concomitant]
     Dosage: DOSAGE IS UNCERTAIN.
     Route: 048
  12. LASIX [Concomitant]
     Dosage: DOSAGE IS UNCERTAIN.
     Route: 065
  13. COVERSYL [Concomitant]
     Dosage: DOSAGE IS UNCERTAIN.
     Route: 065

REACTIONS (2)
  - Rash [Recovering/Resolving]
  - Pancytopenia [Recovering/Resolving]
